FAERS Safety Report 8100489-0 (Version None)
Quarter: 2012Q1

REPORT INFORMATION
  Report Type: 
  Country: None (occurrence: None)
  Receive Date: 20120129
  Receipt Date: 20111102
  Transmission Date: 20120608
  Serious: No
  Sender: FDA-Public Use
  Company Number: US-ABBOTT-11P-163-0870680-00

PATIENT
  Age: 21 Year
  Sex: Male

DRUGS (3)
  1. IMURAN [Concomitant]
     Indication: CROHN'S DISEASE
  2. PROTONIX [Concomitant]
     Indication: GASTROOESOPHAGEAL REFLUX DISEASE
  3. HUMIRA [Suspect]
     Indication: CROHN'S DISEASE
     Dates: start: 20110801

REACTIONS (1)
  - INJECTION SITE PAIN [None]
